FAERS Safety Report 9774800 (Version 1)
Quarter: 2013Q4

REPORT INFORMATION
  Report Type: Spontaneous
  Country: US (occurrence: US)
  Receive Date: 20131220
  Receipt Date: 20131220
  Transmission Date: 20140711
  Serious: No
  Sender: FDA-Public Use
  Company Number: US-GALDERMA-US13002155

PATIENT
  Age: 68 Year
  Sex: Female

DRUGS (10)
  1. METROGEL [Suspect]
     Indication: ROSACEA
     Route: 061
     Dates: start: 2008
  2. METROGEL [Suspect]
     Route: 061
  3. METROGEL [Suspect]
     Route: 061
     Dates: end: 2009
  4. FLUTICASONE NASAL SPRAY [Concomitant]
     Indication: MULTIPLE ALLERGIES
     Route: 045
  5. ADVAIR [Concomitant]
     Indication: ASTHMA
  6. LIPITOR [Concomitant]
     Indication: HYPERCHOLESTEROLAEMIA
     Route: 048
  7. VASOTEC [Concomitant]
     Indication: HYPERTENSION
     Route: 048
  8. DOXYCYCLINE BY MUTUAL PHARMACEUTICALS [Concomitant]
     Indication: ROSACEA
     Route: 048
  9. XOPENEX [Concomitant]
     Indication: ASTHMA
  10. ANTIHISTAMINE [Concomitant]
     Indication: MULTIPLE ALLERGIES
     Route: 048

REACTIONS (1)
  - Skin irritation [Recovered/Resolved]
